FAERS Safety Report 24082319 (Version 4)
Quarter: 2024Q4

REPORT INFORMATION
  Report Type: Spontaneous
  Country: JP (occurrence: JP)
  Receive Date: 20240712
  Receipt Date: 20241220
  Transmission Date: 20250114
  Serious: Yes (Hospitalization, Other)
  Sender: ALK-ABELLO
  Company Number: JP-ALK-ABELLO A/S-2024AA001446

PATIENT

DRUGS (3)
  1. MITICURE [Suspect]
     Active Substance: DERMATOPHAGOIDES FARINAE\DERMATOPHAGOIDES PTERONYSSINUS
     Indication: Rhinitis allergic
     Dosage: 3300 JAU, QD
     Route: 060
     Dates: start: 20201014, end: 20201020
  2. MITICURE [Suspect]
     Active Substance: DERMATOPHAGOIDES FARINAE\DERMATOPHAGOIDES PTERONYSSINUS
     Indication: Immune tolerance induction
     Dosage: 10000 JAU, QD
     Route: 060
     Dates: start: 20201021, end: 20240819
  3. MONTELUKAST [Concomitant]
     Active Substance: MONTELUKAST SODIUM
     Indication: Rhinitis allergic
     Dosage: 5 MILLIGRAM, QD
     Route: 048
     Dates: start: 20231109, end: 20240716

REACTIONS (2)
  - COVID-19 [Unknown]
  - IgA nephropathy [Recovering/Resolving]

NARRATIVE: CASE EVENT DATE: 20231214
